FAERS Safety Report 19615330 (Version 11)
Quarter: 2022Q3

REPORT INFORMATION
  Report Type: Report from Study
  Country: FR (occurrence: FR)
  Receive Date: 20210727
  Receipt Date: 20220923
  Transmission Date: 20221027
  Serious: Yes (Hospitalization, Other)
  Sender: FDA-Public Use
  Company Number: FR-BIOGEN-2021BI01026661

PATIENT
  Age: 81 Year
  Sex: Male
  Weight: 73 kg

DRUGS (12)
  1. ADUCANUMAB [Suspect]
     Active Substance: ADUCANUMAB
     Indication: Dementia Alzheimer^s type
     Route: 050
     Dates: start: 20201221, end: 20210608
  2. MEMANTINE [Concomitant]
     Active Substance: MEMANTINE
     Indication: Dementia Alzheimer^s type
     Dosage: 1 TABLET MORNING
     Route: 050
     Dates: start: 20160905
  3. ATORVASTATIN [Concomitant]
     Active Substance: ATORVASTATIN
     Indication: Hypercholesterolaemia
     Dosage: 1 TABLET MORNING
     Route: 050
     Dates: start: 2010
  4. ASPIRIN [Concomitant]
     Active Substance: ASPIRIN
     Indication: Cardiovascular event prophylaxis
     Dosage: 1 TABLET LUNCHTIME
     Route: 050
     Dates: start: 2015, end: 20210716
  5. RIVASTIGMINE [Concomitant]
     Active Substance: RIVASTIGMINE
     Indication: Dementia Alzheimer^s type
     Dosage: 1 PATCH PER DAY
     Route: 050
     Dates: start: 20160101
  6. PANTOPRAZOLE [Concomitant]
     Active Substance: PANTOPRAZOLE
     Indication: Gastrooesophageal reflux disease
     Dosage: 1 TABLET MORNING
     Route: 050
     Dates: start: 202005
  7. SILODOSIN [Concomitant]
     Active Substance: SILODOSIN
     Indication: Dysuria
     Dosage: 1 CAPSULE EVENING
     Route: 050
     Dates: start: 20200825
  8. SPAGULAX [Concomitant]
     Active Substance: HERBALS\PLANTAGO OVATA SEED
     Indication: Constipation
     Dosage: 1 SACHET MORNING AND EVENING
     Route: 050
     Dates: start: 20200825
  9. TIOTROPIUM [Concomitant]
     Active Substance: TIOTROPIUM
     Indication: Sinusitis
     Route: 050
     Dates: start: 20210315
  10. TRIAMCINOLONE ACETONIDE [Concomitant]
     Active Substance: TRIAMCINOLONE ACETONIDE
     Indication: Sinusitis
     Route: 050
     Dates: start: 20210315
  11. SUCRALFATE [Concomitant]
     Active Substance: SUCRALFATE
     Indication: Gastrooesophageal reflux disease
     Route: 050
     Dates: start: 20210315
  12. VITAMIN A [Concomitant]
     Active Substance: VITAMIN A
     Indication: Dry eye
     Dosage: 1 DROP
     Route: 050
     Dates: start: 202011

REACTIONS (2)
  - Cerebral haematoma [Recovered/Resolved]
  - Amyloid related imaging abnormality-oedema/effusion [Recovered/Resolved]

NARRATIVE: CASE EVENT DATE: 20210628
